FAERS Safety Report 10363871 (Version 1)
Quarter: 2014Q3

REPORT INFORMATION
  Report Type: Spontaneous
  Country: IT (occurrence: None)
  Receive Date: 20140801
  Receipt Date: 20140801
  Transmission Date: 20150326
  Serious: Yes (Other)
  Sender: FDA-Public Use
  Company Number: AUR-APL-2014-07909

PATIENT
  Age: 77 Year
  Sex: Female

DRUGS (7)
  1. AMOXICILLIN TABLET (AMOXICILLIN) TABLET [Suspect]
     Active Substance: AMOXICILLIN
     Indication: OROPHARYNGEAL PAIN
     Dosage: 1 DF, TOTAL, ORAL
     Route: 048
     Dates: start: 20140415, end: 20140415
  2. SEQUACOR (BISOPROLOL FUMARATE) [Concomitant]
  3. LUVION (CANRENOID ACID) [Concomitant]
  4. TORVAST (ATORVASTATIN CALCIUM) [Concomitant]
  5. LASIX (FUUROSEMIDE) [Concomitant]
  6. CARDIOASPIRN (ACETYLSALICYLIC ACID) [Concomitant]
  7. PORODRON (ALENDRONATE SODIUM) [Concomitant]

REACTIONS (3)
  - Angioedema [None]
  - Rash [None]
  - Hypersensitivity [None]

NARRATIVE: CASE EVENT DATE: 20140415
